FAERS Safety Report 10189566 (Version 2)
Quarter: 2014Q2

REPORT INFORMATION
  Report Type: Spontaneous
  Country: US (occurrence: US)
  Receive Date: 20140522
  Receipt Date: 20140522
  Transmission Date: 20141212
  Serious: No
  Sender: FDA-Public Use
  Company Number: US-ASTRAZENECA-2013SE72071

PATIENT
  Age: 70 Year
  Sex: Male
  Weight: 71.2 kg

DRUGS (3)
  1. PULMICORT FLEXHALER [Suspect]
     Dosage: 1 PUFF DAILY PRN
     Route: 055
  2. ALLEGRA [Concomitant]
     Indication: MULTIPLE ALLERGIES
  3. UNKNOWN SHOTS [Concomitant]

REACTIONS (2)
  - Chest discomfort [Unknown]
  - Off label use [Unknown]
